FAERS Safety Report 19160603 (Version 1)
Quarter: 2021Q2

REPORT INFORMATION
  Report Type: Report from Study
  Country: US (occurrence: US)
  Receive Date: 20210420
  Receipt Date: 20210420
  Transmission Date: 20210717
  Serious: Yes (Hospitalization)
  Sender: FDA-Public Use
  Company Number: US-HORIZON THERAPEUTICS-HZN-2021-001698

PATIENT

DRUGS (2)
  1. KRYSTEXXA [Suspect]
     Active Substance: PEGLOTICASE
     Indication: PRODUCT USED FOR UNKNOWN INDICATION
     Route: 065
  2. KRYSTEXXA [Suspect]
     Active Substance: PEGLOTICASE
     Dosage: 7TH INFUSION
     Route: 065
     Dates: start: 20210324, end: 20210324

REACTIONS (3)
  - Gait disturbance [Recovering/Resolving]
  - Pain [Recovering/Resolving]
  - Peripheral swelling [Recovering/Resolving]

NARRATIVE: CASE EVENT DATE: 20210325
